FAERS Safety Report 23802120 (Version 1)
Quarter: 2024Q2

REPORT INFORMATION
  Report Type: Spontaneous
  Country: IT (occurrence: IT)
  Receive Date: 20240501
  Receipt Date: 20240501
  Transmission Date: 20240715
  Serious: Yes (Hospitalization)
  Sender: FDA-Public Use
  Company Number: IT-STRIDES ARCOLAB LIMITED-2024SP005005

PATIENT
  Age: 4 Decade
  Sex: Male

DRUGS (3)
  1. ALBENDAZOLE [Suspect]
     Active Substance: ALBENDAZOLE
     Indication: Pulmonary echinococciasis
     Dosage: UNK
     Route: 065
     Dates: start: 201912
  2. ALBENDAZOLE [Suspect]
     Active Substance: ALBENDAZOLE
     Indication: Lung cyst
     Dosage: UNK (STARTED ONCE AGAIN) (SUSPENDED IN OCT 2022)
     Route: 065
     Dates: start: 202104
  3. AMOXICILLIN\CLAVULANIC ACID [Concomitant]
     Active Substance: AMOXICILLIN\CLAVULANIC ACID
     Indication: Evidence based treatment
     Dosage: UNK
     Route: 065
     Dates: start: 202112

REACTIONS (1)
  - Disease progression [Unknown]
